FAERS Safety Report 10266454 (Version 1)
Quarter: 2014Q2

REPORT INFORMATION
  Report Type: Spontaneous
  Country: US (occurrence: None)
  Receive Date: 20140625
  Receipt Date: 20140625
  Transmission Date: 20141212
  Serious: No
  Sender: FDA-Public Use
  Company Number: None

PATIENT
  Age: 64 Year
  Sex: Female
  Weight: 77.11 kg

DRUGS (2)
  1. BUPROPION XL [Suspect]
     Indication: DEPRESSION
     Dates: start: 20140613, end: 20140623
  2. BUPROPION XL [Suspect]
     Indication: ANXIETY
     Dates: start: 20140613, end: 20140623

REACTIONS (2)
  - Drug ineffective [None]
  - Product substitution issue [None]
